FAERS Safety Report 6644665-2 (Version None)
Quarter: 2010Q1

REPORT INFORMATION
  Report Type: 
  Country: None (occurrence: None)
  Receive Date: 20100322
  Receipt Date: 20100316
  Transmission Date: 20100710
  Serious: Yes (Hospitalization)
  Sender: FDA-Public Use
  Company Number: GB-TEVA-227888ISR

PATIENT
  Age: 38 Year
  Sex: Female

DRUGS (3)
  1. VALPROIC ACID [Suspect]
  2. ARIPIPRAZOLE [Suspect]
  3. FOLIC ACID [Suspect]

REACTIONS (2)
  - BIPOLAR DISORDER [None]
  - DRUG ABUSE [None]
